FAERS Safety Report 17893593 (Version 1)
Quarter: 2020Q2

REPORT INFORMATION
  Report Type: Spontaneous
  Country: ES (occurrence: ES)
  Receive Date: 20200615
  Receipt Date: 20200615
  Transmission Date: 20200714
  Serious: Yes (Death)
  Sender: FDA-Public Use
  Company Number: ES-CADILA HEALTHCARE LIMITED-ES-ZYDUS-026649

PATIENT

DRUGS (7)
  1. VANCOMICINA [Suspect]
     Active Substance: VANCOMYCIN
     Indication: BACTERAEMIA
     Dosage: 1 GRAM,1 GR, 2 VECES AL DIA,(INTERVAL :12 HOURS)
     Route: 042
     Dates: start: 20151117, end: 20151211
  2. MIRTAZAPINE. [Suspect]
     Active Substance: MIRTAZAPINE
     Indication: PRODUCT USED FOR UNKNOWN INDICATION
     Route: 048
     Dates: start: 201512, end: 20151217
  3. TAZOCEL [Suspect]
     Active Substance: PIPERACILLIN SODIUM\TAZOBACTAM SODIUM
     Indication: BACTERAEMIA
     Dosage: ()
     Route: 042
     Dates: start: 20151102, end: 20151211
  4. FLUCONAZOLE. [Suspect]
     Active Substance: FLUCONAZOLE
     Indication: PRODUCT USED FOR UNKNOWN INDICATION
     Dosage: 200 MILLIGRAM,200MG, 1 VEZ AL DIA,(INTERVAL :1 DAYS)
     Route: 042
     Dates: start: 20151130, end: 20151211
  5. ERITROMICIN [Suspect]
     Active Substance: ERYTHROMYCIN
     Indication: BACTERAEMIA
     Dosage: ()
     Dates: start: 20151201, end: 20151222
  6. MEROPENEM. [Suspect]
     Active Substance: MEROPENEM
     Indication: BACTERAEMIA
     Dosage: 1 GRAM,1GR, 3 VECES AL DIA,(INTERVAL :8 HOURS)
     Route: 042
     Dates: start: 20151119, end: 20151211
  7. METAMIZOL [Suspect]
     Active Substance: METAMIZOLE SODIUM
     Indication: PAIN
     Dosage: 2 GRAM,2 GR, 3 VECES AL SIA,(INTERVAL :8 HOURS)
     Route: 042
     Dates: start: 20151208, end: 20151217

REACTIONS (1)
  - Toxic epidermal necrolysis [Fatal]

NARRATIVE: CASE EVENT DATE: 20151214
